FAERS Safety Report 6967391-9 (Version None)
Quarter: 2010Q3

REPORT INFORMATION
  Report Type: 
  Country: None (occurrence: None)
  Receive Date: 20100901
  Receipt Date: 20100818
  Transmission Date: 20110219
  Serious: Yes (Hospitalization)
  Sender: FDA-Public Use
  Company Number: 017845

PATIENT
  Sex: Male

DRUGS (24)
  1. ROTIGOTINE (ROTIGOTINE) [Suspect]
     Indication: PARKINSON'S DISEASE
     Dosage: SEE IMAGE
     Route: 062
     Dates: start: 20100114, end: 20100120
  2. ROTIGOTINE (ROTIGOTINE) [Suspect]
     Indication: PARKINSON'S DISEASE
     Dosage: SEE IMAGE
     Route: 062
     Dates: start: 20100121, end: 20100127
  3. ROTIGOTINE (ROTIGOTINE) [Suspect]
     Indication: PARKINSON'S DISEASE
     Dosage: SEE IMAGE
     Route: 062
     Dates: start: 20100128, end: 20100203
  4. ROTIGOTINE (ROTIGOTINE) [Suspect]
     Indication: PARKINSON'S DISEASE
     Dosage: SEE IMAGE
     Route: 062
     Dates: start: 20100204, end: 20100208
  5. ROTIGOTINE (ROTIGOTINE) [Suspect]
     Indication: PARKINSON'S DISEASE
     Dosage: SEE IMAGE
     Route: 062
     Dates: start: 20100209, end: 20100217
  6. ROTIGOTINE (ROTIGOTINE) [Suspect]
     Indication: PARKINSON'S DISEASE
     Dosage: SEE IMAGE
     Route: 062
     Dates: start: 20100218, end: 20100224
  7. ROTIGOTINE (ROTIGOTINE) [Suspect]
     Indication: PARKINSON'S DISEASE
     Dosage: SEE IMAGE
     Route: 062
     Dates: start: 20100225, end: 20100303
  8. ROTIGOTINE (ROTIGOTINE) [Suspect]
     Indication: PARKINSON'S DISEASE
     Dosage: SEE IMAGE
     Route: 062
     Dates: start: 20100304
  9. CARBIDOPA AND LEVODOPA [Concomitant]
  10. DOMPERIDONE [Concomitant]
  11. AMLODIPINE BESYLATE [Concomitant]
  12. INSULIN HUMAN [Concomitant]
  13. DICLOFENAC SODIUM [Concomitant]
  14. MAGNESIUM OXIDE [Concomitant]
  15. TERBINAFINE HYDROCHLORIDE [Concomitant]
  16. UREA [Concomitant]
  17. STRONG RESTAMIN CORTISONE [Concomitant]
  18. MECOBALAMIN [Concomitant]
  19. TOCOPHEROL CONCENTRATE CAP [Concomitant]
  20. EPALRESTAT [Concomitant]
  21. CAPSAICIN [Concomitant]
  22. SELEGILINE HYDROCHLORIDE [Concomitant]
  23. ENTACAPONE [Concomitant]
  24. LOXOPROFEN SODIUM [Concomitant]

REACTIONS (6)
  - ASTHENIA [None]
  - COLITIS [None]
  - DEHYDRATION [None]
  - FALL [None]
  - HYPERHIDROSIS [None]
  - PYREXIA [None]
